FAERS Safety Report 8920323 (Version 1)
Quarter: 2012Q4

REPORT INFORMATION
  Report Type: 
  Country: NL (occurrence: NL)
  Receive Date: 20121121
  Receipt Date: 20121121
  Transmission Date: 20130627
  Serious: Yes (Other)
  Sender: FDA-Public Use
  Company Number: NL-B.I. PHARMACEUTICALS,INC./RIDGEFIELD-2012-NL-00489NL

PATIENT

DRUGS (1)
  1. PRADAXA [Suspect]

REACTIONS (1)
  - Transient ischaemic attack [Unknown]
